FAERS Safety Report 18117413 (Version 2)
Quarter: 2021Q2

REPORT INFORMATION
  Report Type: Spontaneous
  Country: CA (occurrence: CA)
  Receive Date: 20200806
  Receipt Date: 20210413
  Transmission Date: 20210717
  Serious: Yes (Death, Life-Threatening, Hospitalization)
  Sender: FDA-Public Use
  Company Number: CA-009507513-2008CAN001403

PATIENT
  Age: 85 Year
  Sex: Male

DRUGS (4)
  1. CEPHALEXIN. [Suspect]
     Active Substance: CEPHALEXIN
     Dosage: 4 DOSAGE FORM, 1 EVERY 1 DAYS
     Route: 048
  2. CEPHALEXIN. [Suspect]
     Active Substance: CEPHALEXIN
     Indication: LOCALISED INFECTION
     Dosage: DOSE: 0.4 DOSAGE FORMS; FREQUENCY: 1 EVERY 1 DAYS;
     Route: 048
  3. NIFEDIPINE. [Concomitant]
     Active Substance: NIFEDIPINE
     Dosage: DOSAGE FORM: NOT SPECIFIED
  4. INVANZ [Suspect]
     Active Substance: ERTAPENEM SODIUM
     Indication: LOCALISED INFECTION
     Dosage: DOSAGE FORM: POWDER FOR SOLUTION INTRAMUSCULAR
     Route: 042

REACTIONS (13)
  - Diarrhoea [Fatal]
  - Loss of consciousness [Fatal]
  - Unresponsive to stimuli [Fatal]
  - Asthenia [Fatal]
  - Lethargy [Fatal]
  - Headache [Fatal]
  - Hypersomnia [Fatal]
  - Malaise [Fatal]
  - Dehydration [Fatal]
  - Hypotension [Fatal]
  - Abdominal discomfort [Fatal]
  - Drug interaction [Fatal]
  - Dyspnoea [Fatal]
